FAERS Safety Report 6742353-5 (Version None)
Quarter: 2010Q2

REPORT INFORMATION
  Report Type: 
  Country: None (occurrence: None)
  Receive Date: 20100526
  Receipt Date: 20100517
  Transmission Date: 20101027
  Serious: Yes (Other)
  Sender: FDA-Public Use
  Company Number: AU-BRISTOL-MYERS SQUIBB COMPANY-15108608

PATIENT
  Age: 19 Year
  Sex: Male

DRUGS (4)
  1. CYCLOPHOSPHAMIDE [Suspect]
     Indication: T-CELL LYMPHOMA
  2. VINCRISTINE SULFATE [Suspect]
     Indication: T-CELL LYMPHOMA
  3. ADRIAMYCIN PFS [Suspect]
     Indication: T-CELL LYMPHOMA
  4. DEXAMETHASONE [Suspect]
     Indication: T-CELL LYMPHOMA

REACTIONS (1)
  - LYMPH NODE CALCIFICATION [None]
